FAERS Safety Report 9886278 (Version 2)
Quarter: 2014Q1

REPORT INFORMATION
  Report Type: Spontaneous
  Country: IL (occurrence: IL)
  Receive Date: 20140210
  Receipt Date: 20140210
  Transmission Date: 20141002
  Serious: Yes (Hospitalization)
  Sender: FDA-Public Use
  Company Number: US-ASTRAZENECA-2014SE06552

PATIENT
  Age: 11 Month
  Sex: Female

DRUGS (1)
  1. SYNAGIS [Suspect]
     Indication: ANTIVIRAL PROPHYLAXIS
     Route: 030
     Dates: start: 20131223

REACTIONS (6)
  - Gastroenteritis rotavirus [Recovered/Resolved]
  - Dyspnoea [Unknown]
  - Tachypnoea [Recovered/Resolved]
  - Respiratory syncytial virus bronchiolitis [Recovered/Resolved]
  - Rectal haemorrhage [Unknown]
  - Stoma site inflammation [Unknown]
